FAERS Safety Report 8614292-6 (Version None)
Quarter: 2012Q3

REPORT INFORMATION
  Report Type: 
  Country: None (occurrence: None)
  Receive Date: 20120813
  Receipt Date: 20120813
  Transmission Date: 20120928
  Serious: No
  Sender: FDA-Public Use
  Company Number: None

PATIENT
  Sex: Female

DRUGS (6)
  1. FLUTICASONE PROPIONATE [Concomitant]
  2. LOVASTATIN [Concomitant]
  3. HYDROCHLOROTHIAZIDE [Concomitant]
  4. POTASSIUM CHLORIDE [Concomitant]
  5. LOSARTAN POTASSIUM [Concomitant]
  6. REVLIMID [Suspect]
     Indication: DIFFUSE LARGE B-CELL LYMPHOMA
     Dosage: 25 MG DAILY X21D/28D ORALLY
     Route: 048
     Dates: start: 20120101

REACTIONS (3)
  - ASTHENIA [None]
  - NEUTROPENIA [None]
  - FATIGUE [None]
